FAERS Safety Report 7543784-6 (Version None)
Quarter: 2011Q2

REPORT INFORMATION
  Report Type: 
  Country: None (occurrence: None)
  Receive Date: 20110613
  Receipt Date: 20110531
  Transmission Date: 20111010
  Serious: No
  Sender: FDA-Public Use
  Company Number: US-B.I. PHARMACEUTICALS,INC./RIDGEFIELD-2011-BP-13309BP

PATIENT
  Sex: Male

DRUGS (15)
  1. PRILOSEC [Concomitant]
     Indication: DYSPEPSIA
     Dosage: 60 MG
  2. PRADAXA [Suspect]
     Indication: DRUG THERAPY CHANGED
  3. CORDARONE [Concomitant]
     Indication: ATRIAL FIBRILLATION
  4. VITAMIN D [Concomitant]
  5. XALATAN [Concomitant]
     Indication: GLAUCOMA
  6. PRADAXA [Suspect]
     Indication: ATRIAL FIBRILLATION
     Dosage: 300 MG
     Route: 048
     Dates: start: 20110325, end: 20110503
  7. SYNTHROID [Concomitant]
     Indication: HYPOTHYROIDISM
     Dosage: 125 MCG
  8. MULTI-VITAMIN [Concomitant]
  9. LAMOTRIGINE [Concomitant]
     Indication: CONVULSION
     Dosage: 100 MG
  10. MURO [Concomitant]
  11. ALPHAGAN [Concomitant]
     Indication: GLAUCOMA
  12. ASPIRIN [Concomitant]
     Indication: ROUTINE HEALTH MAINTENANCE
  13. TYLENOL (CAPLET) [Concomitant]
     Dosage: 1300 MG
  14. COSOPT [Concomitant]
     Indication: GLAUCOMA
  15. VITAMIN B-12 [Concomitant]

REACTIONS (3)
  - THIRST [None]
  - POLLAKIURIA [None]
  - DIARRHOEA [None]
